FAERS Safety Report 16936167 (Version 2)
Quarter: 2020Q1

REPORT INFORMATION
  Report Type: Spontaneous
  Country: US (occurrence: US)
  Receive Date: 20191018
  Receipt Date: 20200120
  Transmission Date: 20200409
  Serious: No
  Sender: FDA-Public Use
  Company Number: US-INSMED, INC.-US-INS-19-02500

PATIENT
  Sex: Male
  Weight: 88.45 kg

DRUGS (3)
  1. ARIKAYCE [Suspect]
     Active Substance: AMIKACIN
     Indication: MYCOBACTERIUM AVIUM COMPLEX INFECTION
     Route: 055
     Dates: start: 201909, end: 201911
  2. ARIKAYCE [Suspect]
     Active Substance: AMIKACIN
     Indication: CYSTIC FIBROSIS
     Route: 055
     Dates: start: 20190410, end: 201909
  3. LAMIRA NEBULIZER SYSTEM [Suspect]
     Active Substance: DEVICE

REACTIONS (6)
  - Asthenia [Recovering/Resolving]
  - Intentional product misuse [Unknown]
  - Dyspnoea [Recovering/Resolving]
  - Malaise [Unknown]
  - Fatigue [Recovering/Resolving]
  - Tremor [Recovering/Resolving]
